FAERS Safety Report 9596121 (Version 2)
Quarter: 2013Q4

REPORT INFORMATION
  Report Type: Spontaneous
  Country: FR (occurrence: FR)
  Receive Date: 20131004
  Receipt Date: 20131129
  Transmission Date: 20140711
  Serious: Yes (Death, Life-Threatening, Hospitalization, Other)
  Sender: FDA-Public Use
  Company Number: FR-ASTRAZENECA-2013SE73502

PATIENT
  Age: 30962 Day
  Sex: Male

DRUGS (21)
  1. MOPRALPRO [Suspect]
     Indication: GASTROOESOPHAGEAL REFLUX DISEASE
     Route: 048
     Dates: end: 20130827
  2. INEXIUM [Suspect]
     Route: 048
     Dates: end: 20130920
  3. TAZOCILLINE [Suspect]
     Route: 065
     Dates: start: 20130821, end: 20130927
  4. OFLOCET [Suspect]
     Indication: COUGH
     Route: 065
     Dates: start: 20130729, end: 20130812
  5. ROCEPHINE [Suspect]
     Indication: RESPIRATORY DISTRESS
     Route: 065
     Dates: start: 20130818, end: 20130821
  6. CIFLOX [Suspect]
     Indication: RESPIRATORY DISTRESS
     Dates: start: 20130818, end: 20130821
  7. RULID [Suspect]
     Route: 065
     Dates: start: 20130821, end: 20130829
  8. CORDARONE [Suspect]
     Dates: start: 20130828
  9. LASILIX [Suspect]
     Dates: start: 20130826, end: 20130927
  10. MONOTILDIEM [Concomitant]
     Dates: end: 20130927
  11. MONOTILDIEM [Concomitant]
     Dates: start: 20130925, end: 20130927
  12. JOSIR [Concomitant]
     Dates: end: 20130927
  13. INORIAL [Concomitant]
     Dates: end: 20130927
  14. SPIRIVA [Concomitant]
     Dates: end: 20130927
  15. ARESTAL [Concomitant]
     Dates: end: 20130927
  16. PNEUMOREL [Concomitant]
     Dates: end: 20130927
  17. DEXARYL [Concomitant]
     Dates: end: 20130927
  18. CALCIPARINE [Concomitant]
  19. PREVISCAN [Concomitant]
     Dates: end: 20130927
  20. CANCIDAS [Concomitant]
     Dates: start: 20130829, end: 20130927
  21. KALEORID [Concomitant]
     Dates: start: 20130925, end: 20130927

REACTIONS (18)
  - Septic shock [Not Recovered/Not Resolved]
  - Bone marrow failure [Fatal]
  - Multi-organ failure [Fatal]
  - Acute respiratory distress syndrome [Unknown]
  - Renal failure acute [Fatal]
  - Infection [Unknown]
  - Oral herpes [Unknown]
  - Infectious disease carrier [Unknown]
  - Coma [Unknown]
  - Hepatitis acute [Unknown]
  - Productive cough [Unknown]
  - General physical health deterioration [Unknown]
  - Pseudomonas test positive [Unknown]
  - Stenotrophomonas test positive [Unknown]
  - Atrial fibrillation [Unknown]
  - Pyrexia [Recovered/Resolved]
  - Somnolence [Unknown]
  - Therapy cessation [Unknown]
